FAERS Safety Report 10062005 (Version 6)
Quarter: 2016Q4

REPORT INFORMATION
  Report Type: Spontaneous
  Country: FR (occurrence: FR)
  Receive Date: 20140407
  Receipt Date: 20161104
  Transmission Date: 20170206
  Serious: Yes (Hospitalization, Disabling)
  Sender: FDA-Public Use
  Company Number: FR-BAYER-2014-049517

PATIENT
  Age: 19 Year
  Sex: Female
  Weight: 54 kg

DRUGS (4)
  1. MELODIA [Suspect]
     Active Substance: ETHINYL ESTRADIOL\GESTODENE
     Indication: CONTRACEPTION
     Dosage: UNK
     Route: 048
     Dates: start: 201108, end: 201111
  2. YAZ [Suspect]
     Active Substance: DROSPIRENONE\ETHINYL ESTRADIOL
     Indication: CONTRACEPTION
     Dosage: UNK
     Route: 048
     Dates: start: 201111, end: 201302
  3. JASMINELLE [Suspect]
     Active Substance: DROSPIRENONE
     Indication: CONTRACEPTION
     Dosage: UNK
     Dates: start: 2007
  4. DIANE (CYPROTERONE ACETATE\ETHINYL ESTRADIOL) [Suspect]
     Active Substance: CYPROTERONE ACETATE\ETHINYL ESTRADIOL
     Indication: ORAL CONTRACEPTION
     Dosage: UNK
     Dates: start: 2007

REACTIONS (30)
  - Abnormal behaviour [None]
  - Mobility decreased [Recovered/Resolved]
  - Headache [Recovered/Resolved]
  - Blindness unilateral [Recovered/Resolved]
  - Headache [None]
  - Cognitive disorder [Recovered/Resolved]
  - Hemianopia homonymous [Recovered/Resolved]
  - Aphasia [Recovered/Resolved]
  - Memory impairment [Recovered/Resolved]
  - Heterophoria [Recovered/Resolved]
  - Cerebral haematoma [None]
  - Confusional state [None]
  - Acne [Recovering/Resolving]
  - Transverse sinus thrombosis [Recovered/Resolved]
  - Psychomotor skills impaired [Recovered/Resolved]
  - Headache [None]
  - Abnormal behaviour [Recovered/Resolved]
  - Headache [None]
  - Psychomotor retardation [None]
  - Transverse sinus thrombosis [None]
  - Disorientation [Recovered/Resolved]
  - Weight increased [None]
  - Cerebral haematoma [Recovered/Resolved]
  - Fatigue [Recovered/Resolved]
  - Headache [None]
  - Off label use [None]
  - Confusional state [Recovered/Resolved]
  - Depressed level of consciousness [Recovered/Resolved]
  - Visual impairment [Recovered/Resolved]
  - Judgement impaired [Recovered/Resolved]

NARRATIVE: CASE EVENT DATE: 2007
